FAERS Safety Report 8478826-7 (Version None)
Quarter: 2012Q2

REPORT INFORMATION
  Report Type: 
  Country: None (occurrence: None)
  Receive Date: 20120629
  Receipt Date: 20120625
  Transmission Date: 20120825
  Serious: Yes (Other)
  Sender: FDA-Public Use
  Company Number: JP-TEVA-345627USA

PATIENT
  Age: 76 Year
  Sex: Female

DRUGS (1)
  1. TREANDA [Suspect]
     Indication: PLASMABLASTIC LYMPHOMA
     Route: 042

REACTIONS (1)
  - DELIRIUM [None]
